FAERS Safety Report 7215687-8 (Version None)
Quarter: 2011Q1

REPORT INFORMATION
  Report Type: 
  Country: None (occurrence: None)
  Receive Date: 20110107
  Receipt Date: 20101229
  Transmission Date: 20110831
  Serious: Yes (Other)
  Sender: FDA-Public Use
  Company Number: GB-JNJFOC-20090708324

PATIENT
  Weight: 2.9 kg

DRUGS (2)
  1. PARACETAMOL [Suspect]
     Route: 064
  2. PARACETAMOL [Suspect]
     Indication: DRUG EXPOSURE DURING PREGNANCY
     Dosage: ONCE
     Route: 064

REACTIONS (7)
  - BLEEDING TIME PROLONGED [None]
  - HYPOGLYCAEMIA [None]
  - JAUNDICE [None]
  - TOXICITY TO VARIOUS AGENTS [None]
  - HEPATOTOXICITY [None]
  - HEPATIC FUNCTION ABNORMAL [None]
  - LIVER INJURY [None]
